FAERS Safety Report 12446190 (Version 1)
Quarter: 2016Q2

REPORT INFORMATION
  Report Type: Spontaneous
  Country: US (occurrence: US)
  Receive Date: 20160608
  Receipt Date: 20160608
  Transmission Date: 20160815
  Serious: No
  Sender: FDA-Public Use
  Company Number: US-BIOGEN-2016BI00239489

PATIENT
  Sex: Female

DRUGS (1)
  1. AVONEX [Suspect]
     Active Substance: INTERFERON BETA-1A
     Indication: MULTIPLE SCLEROSIS
     Route: 030
     Dates: start: 201602

REACTIONS (6)
  - Vision blurred [Unknown]
  - Facial paralysis [Unknown]
  - Influenza like illness [Unknown]
  - Hemianaesthesia [Unknown]
  - Injection site reaction [Unknown]
  - Memory impairment [Unknown]
